FAERS Safety Report 25504481 (Version 1)
Quarter: 2025Q3

REPORT INFORMATION
  Report Type: Spontaneous
  Country: EU (occurrence: EU)
  Receive Date: 20250702
  Receipt Date: 20250702
  Transmission Date: 20251021
  Serious: Yes (Other)
  Sender: PFIZER
  Company Number: EU-PFIZER INC-PV202500077868

PATIENT
  Sex: Female

DRUGS (1)
  1. ELRANATAMAB [Suspect]
     Active Substance: ELRANATAMAB
     Indication: Plasma cell myeloma
     Dates: start: 202501

REACTIONS (2)
  - Autoimmune disorder [Recovered/Resolved]
  - Herpes zoster [Recovered/Resolved]
